FAERS Safety Report 16826285 (Version 1)
Quarter: 2019Q3

REPORT INFORMATION
  Report Type: Spontaneous
  Country: DE (occurrence: DE)
  Receive Date: 20190919
  Receipt Date: 20190919
  Transmission Date: 20191005
  Serious: Yes (Hospitalization, Other)
  Sender: FDA-Public Use
  Company Number: DE-SA-2019SA260680

PATIENT
  Sex: Male

DRUGS (1)
  1. CABLIVI [Suspect]
     Active Substance: CAPLACIZUMAB-YHDP
     Dosage: UNK
     Route: 040

REACTIONS (2)
  - Pulmonary haemorrhage [Recovering/Resolving]
  - Pneumonia [Unknown]
